FAERS Safety Report 21979017 (Version 2)
Quarter: 2023Q2

REPORT INFORMATION
  Report Type: Spontaneous
  Country: CA (occurrence: CA)
  Receive Date: 20230210
  Receipt Date: 20230410
  Transmission Date: 20230721
  Serious: Yes (Other)
  Sender: FDA-Public Use
  Company Number: CA-PFIZER INC-202201188474

PATIENT
  Age: 76 Year
  Sex: Female
  Weight: 80.3 kg

DRUGS (23)
  1. RUXIENCE [Suspect]
     Active Substance: RITUXIMAB-PVVR
     Indication: Granulomatosis with polyangiitis
     Dosage: 1000 MG, DAY 1 AND DAY 15
     Route: 042
     Dates: start: 20221011
  2. RUXIENCE [Suspect]
     Active Substance: RITUXIMAB-PVVR
     Indication: Antineutrophil cytoplasmic antibody
     Dosage: 1000 MG, DAY 1 AND DAY 15
     Route: 042
     Dates: start: 20221025
  3. RUXIENCE [Suspect]
     Active Substance: RITUXIMAB-PVVR
     Dosage: 500 MG, ONCE
     Route: 042
     Dates: start: 20230403
  4. ACETAMINOPHEN [Concomitant]
     Active Substance: ACETAMINOPHEN
     Indication: Premedication
     Dosage: 500 MG
  5. ACETAMINOPHEN [Concomitant]
     Active Substance: ACETAMINOPHEN
     Dosage: 650 MG
     Dates: start: 20230403, end: 20230403
  6. AMLODIPINE [Concomitant]
     Active Substance: AMLODIPINE BESYLATE
     Dosage: 0.5 MG
  7. PREDNISONE [Concomitant]
     Active Substance: PREDNISONE
     Dosage: UNK
  8. BISOPROLOL [Concomitant]
     Active Substance: BISOPROLOL
     Dosage: 2.5 MG
  9. CALCIUM MAGNESIUM [CALCIUM;MAGNESIUM] [Concomitant]
     Dosage: UNK
  10. VITAMINS [Concomitant]
     Active Substance: VITAMINS
     Dosage: UNK
  11. DIPHENHYDRAMINE [Concomitant]
     Active Substance: DIPHENHYDRAMINE
     Indication: Premedication
     Dosage: 50 MG
     Dates: start: 20230403, end: 20230403
  12. FISH OIL [Concomitant]
     Active Substance: FISH OIL
     Dosage: 1200 MG
  13. METHYLPREDNISOLONE [Concomitant]
     Active Substance: METHYLPREDNISOLONE
     Indication: Premedication
     Dosage: 100 MG
     Dates: start: 20230403, end: 20230403
  14. OLMESARTAN [Concomitant]
     Active Substance: OLMESARTAN
     Dosage: 40 MG
  15. PANTOPRAZOLE SODIUM [Concomitant]
     Active Substance: PANTOPRAZOLE SODIUM
     Dosage: 40 MG
  16. PROLIA [Concomitant]
     Active Substance: DENOSUMAB
     Dosage: 60 MG
  17. SULFASALAZINE [Concomitant]
     Active Substance: SULFASALAZINE
     Dosage: 1 DF
  18. SULFASALAZINE [Concomitant]
     Active Substance: SULFASALAZINE
     Dosage: 1500 MG
  19. HERBALS\TURMERIC [Concomitant]
     Active Substance: HERBALS\TURMERIC
     Dosage: 500 MG
  20. VITAMIN B6 [Concomitant]
     Active Substance: PYRIDOXINE HYDROCHLORIDE
     Dosage: 100 MG
  21. VITAMIN B-COMPLEX [Concomitant]
     Active Substance: DEXPANTHENOL\NIACINAMIDE\PYRIDOXINE HYDROCHLORIDE\RIBOFLAVIN 5^-PHOSPHATE SODIUM\THIAMINE HYDROCHLOR
     Dosage: 100 MG
  22. VITAMIN C [Concomitant]
     Active Substance: ASCORBIC ACID
     Dosage: 1000 MG
  23. .ALPHA.-TOCOPHEROL [Concomitant]
     Active Substance: .ALPHA.-TOCOPHEROL
     Dosage: 400 IU

REACTIONS (13)
  - Knee operation [Unknown]
  - Bradycardia [Recovered/Resolved]
  - Neuropathy peripheral [Recovering/Resolving]
  - Off label use [Unknown]
  - Intentional product use issue [Unknown]
  - Off label use [Unknown]
  - Arthralgia [Not Recovered/Not Resolved]
  - Asthenia [Recovering/Resolving]
  - Fatigue [Recovering/Resolving]
  - Loss of personal independence in daily activities [Recovering/Resolving]
  - Pain in extremity [Not Recovered/Not Resolved]
  - Pruritus [Not Recovered/Not Resolved]
  - Tooth injury [Unknown]

NARRATIVE: CASE EVENT DATE: 20221201
